FAERS Safety Report 5298363-0 (Version None)
Quarter: 2007Q2

REPORT INFORMATION
  Report Type: 
  Country: None (occurrence: None)
  Receive Date: 20070406
  Receipt Date: 20070403
  Transmission Date: 20071010
  Serious: Yes (Death)
  Sender: FDA-Public Use
  Company Number: L07-ITA-01435-01

PATIENT
  Age: 30 Year
  Sex: Male

DRUGS (5)
  1. CITALOPRAM HYDROBROMIDE [Suspect]
  2. DINITROPHENOL [Suspect]
  3. OLANZAPINE [Concomitant]
  4. DESALKYLFLURAZEPAM [Concomitant]
  5. NORDAZEPAM [Concomitant]

REACTIONS (5)
  - DRUG INTERACTION [None]
  - DRUG TOXICITY [None]
  - OVERDOSE [None]
  - PULMONARY OEDEMA [None]
  - VISCERAL CONGESTION [None]
